FAERS Safety Report 6283827-3 (Version None)
Quarter: 2009Q3

REPORT INFORMATION
  Report Type: 
  Country: None (occurrence: None)
  Receive Date: 20090724
  Receipt Date: 20090722
  Transmission Date: 20100115
  Serious: Yes (Life-Threatening, Hospitalization)
  Sender: FDA-Public Use
  Company Number: US-ASTRAZENECA-2009UW05258

PATIENT
  Age: 61 Year
  Sex: Female
  Weight: 106.6 kg

DRUGS (15)
  1. SEROQUEL [Suspect]
     Indication: DEPRESSION
     Dosage: 25-50 MG ONCE
     Route: 048
     Dates: start: 20090202, end: 20090203
  2. CYMBALTA [Interacting]
  3. BENAZEPRIL HYDROCHLORIDE [Concomitant]
     Dosage: 20/25 DAILY
  4. VERAPAMIL [Concomitant]
  5. NEXIUM [Concomitant]
     Route: 048
  6. ADVAIR HFA [Concomitant]
     Dosage: 250/50 BID
  7. ALBUTEROL [Concomitant]
     Dosage: PRN
     Route: 055
  8. CELEBREX [Concomitant]
     Dosage: 200 MG DAILY PRN
  9. ALLOPURINOL [Concomitant]
  10. FISH OIL [Concomitant]
  11. SOMA [Concomitant]
  12. VALIUM [Concomitant]
     Dosage: 10 MG BID PRN
  13. AZOPT [Concomitant]
  14. XALATAN [Concomitant]
     Dosage: DAILY
  15. LAMISIL [Concomitant]

REACTIONS (2)
  - DRUG INTERACTION [None]
  - TOXIC ENCEPHALOPATHY [None]
